FAERS Safety Report 26093663 (Version 2)
Quarter: 2025Q4

REPORT INFORMATION
  Report Type: Spontaneous
  Country: CH (occurrence: CH)
  Receive Date: 20251126
  Receipt Date: 20251203
  Transmission Date: 20260117
  Serious: Yes (Life-Threatening)
  Sender: SANDOZ
  Company Number: None

PATIENT
  Age: 9 Year
  Sex: Male
  Weight: 35 kg

DRUGS (6)
  1. CYCLOSPORINE [Suspect]
     Active Substance: CYCLOSPORINE
     Indication: Alloimmunisation
     Dosage: 67.5 MG, Q12H; SANDIMMUN NEORAL
     Route: 048
     Dates: start: 20250911, end: 20251008
  2. DARZALEX [Suspect]
     Active Substance: DARATUMUMAB
     Indication: Transfusion reaction
     Dosage: 436 MG, 3 DOSES TOTAL (29.09.2025 / 06.10.2025 /19.10.2025)
     Route: 042
     Dates: start: 20250929
  3. MYCOPHENOLATE MOFETIL [Suspect]
     Active Substance: MYCOPHENOLATE MOFETIL
     Indication: Immunosuppression
     Dosage: 500 MG, Q12H
     Route: 048
     Dates: start: 20250625, end: 202510
  4. PRIVIGEN [Suspect]
     Active Substance: HUMAN IMMUNOGLOBULIN G
     Indication: Transfusion reaction
     Dosage: 1 GRAM PER KILOGRAM (15 G LE 01.09.2020, 17 G LE 23.09.2020, 25 G LE 24.06.2025, 27.4 G LE 08.08.202
     Route: 042
     Dates: start: 20200901, end: 20251007
  5. RITUXIMAB [Suspect]
     Active Substance: RITUXIMAB
     Indication: Product used for unknown indication
     Dosage: 350 MG (TRUXIMA)
     Route: 042
     Dates: start: 20250623, end: 20250623
  6. RITUXIMAB [Suspect]
     Active Substance: RITUXIMAB
     Indication: Product used for unknown indication
     Dosage: 375 MG/M2 (4 DOSES TOTAL (07.02.024 / 15.02.2024 / 21.02.2024 / 28.02.2024))
     Route: 042
     Dates: start: 20240207, end: 20240228

REACTIONS (1)
  - Posterior reversible encephalopathy syndrome [Recovering/Resolving]

NARRATIVE: CASE EVENT DATE: 20251008
